FAERS Safety Report 4738392-6 (Version None)
Quarter: 2005Q3

REPORT INFORMATION
  Report Type: 
  Country: None (occurrence: None)
  Receive Date: 20050809
  Receipt Date: 20041203
  Transmission Date: 20060218
  Serious: Yes (Other)
  Sender: FDA-Public Use
  Company Number: GB-GLAXOSMITHKLINE-B0359599A

PATIENT
  Sex: Male

DRUGS (3)
  1. SEROXAT [Suspect]
     Route: 065
     Dates: start: 19991125
  2. PARACETAMOL [Suspect]
     Route: 065
  3. CO-DYDRAMOL [Suspect]
     Route: 065

REACTIONS (7)
  - COMPLETED SUICIDE [None]
  - DIZZINESS [None]
  - DRUG WITHDRAWAL SYNDROME [None]
  - MULTIPLE DRUG OVERDOSE [None]
  - OVERDOSE [None]
  - PARAESTHESIA [None]
  - TENSION [None]
